FAERS Safety Report 11199256 (Version 1)
Quarter: 2015Q2

REPORT INFORMATION
  Report Type: Spontaneous
  Country: NL (occurrence: NL)
  Receive Date: 20150618
  Receipt Date: 20150618
  Transmission Date: 20150821
  Serious: Yes (Death)
  Sender: FDA-Public Use
  Company Number: NL-PFIZER INC-2015203788

PATIENT
  Age: 72 Year
  Sex: Female

DRUGS (3)
  1. LOSARTAN POTASSIUM ACCORD [Concomitant]
     Dosage: 100 MG, 1X/DAY
     Dates: start: 20140117
  2. HYDROXOCOBALAMIN [Concomitant]
     Active Substance: HYDROXOCOBALAMIN
     Dosage: 1 DF, 9 WEEKS
     Dates: start: 20140121
  3. SERTRALINE HCL [Suspect]
     Active Substance: SERTRALINE HYDROCHLORIDE
     Indication: DEPRESSION
     Dosage: 200 MG, 1X/DAY
     Dates: start: 20150130, end: 2015

REACTIONS (1)
  - Interstitial lung disease [Fatal]

NARRATIVE: CASE EVENT DATE: 201503
